FAERS Safety Report 4473113-6 (Version None)
Quarter: 2004Q4

REPORT INFORMATION
  Report Type: 
  Country: None (occurrence: None)
  Receive Date: 20041008
  Receipt Date: 20040920
  Transmission Date: 20050328
  Serious: Yes (Other)
  Sender: FDA-Public Use
  Company Number: M2004-1448

PATIENT
  Age: 13 Year
  Sex: Female

DRUGS (6)
  1. ISONIAZID [Suspect]
     Indication: MENINGITIS TUBERCULOUS
  2. RIMACTANE [Suspect]
     Indication: MENINGITIS TUBERCULOUS
     Dosage: ORAL
     Route: 048
  3. PYRAZINAMIDE [Suspect]
     Indication: MENINGITIS TUBERCULOUS
  4. PYRIDOXINE (PYRIDOXINE) [Suspect]
     Indication: MENINGITIS TUBERCULOUS
  5. DEXAMETHASONE [Suspect]
     Indication: MENINGITIS TUBERCULOUS
  6. ETHAMBUTOL (ETHAMBUTOL) [Suspect]
     Indication: MENINGITIS TUBERCULOUS

REACTIONS (3)
  - ARTHRALGIA [None]
  - BLOOD PARATHYROID HORMONE INCREASED [None]
  - HYPOCALCAEMIA [None]
